FAERS Safety Report 4402290-8 (Version None)
Quarter: 2004Q3

REPORT INFORMATION
  Report Type: 
  Country: None (occurrence: None)
  Receive Date: 20040720
  Receipt Date: 20040608
  Transmission Date: 20050211
  Serious: Yes (Other)
  Sender: FDA-Public Use
  Company Number: 2004/00691

PATIENT
  Age: 7 Year
  Sex: Male
  Weight: 30 kg

DRUGS (3)
  1. SERETIDE [Suspect]
     Indication: ASTHMA
     Route: 055
     Dates: start: 20040116, end: 20040323
  2. ZYRTEC [Concomitant]
     Route: 048
     Dates: start: 20031101
  3. NASONEX [Concomitant]
     Route: 045
     Dates: start: 20031101

REACTIONS (5)
  - AGGRESSION [None]
  - EARLY MORNING AWAKENING [None]
  - INITIAL INSOMNIA [None]
  - INSOMNIA [None]
  - PSYCHOMOTOR HYPERACTIVITY [None]
